FAERS Safety Report 9290733 (Version 1)
Quarter: 2013Q2

REPORT INFORMATION
  Report Type: Spontaneous
  Country: AU (occurrence: AU)
  Receive Date: 20130515
  Receipt Date: 20130515
  Transmission Date: 20140414
  Serious: Yes (Other)
  Sender: FDA-Public Use
  Company Number: PHHY2013AU047366

PATIENT
  Age: 23 Year
  Sex: Female

DRUGS (8)
  1. DICLOFENAC POTASSIUM [Suspect]
     Dosage: UNK UKN, UNK
  2. ORPHENADRINE [Suspect]
     Dosage: UNK UKN, UNK
  3. QUININE [Suspect]
     Dosage: UNK UKN, UNK
  4. HYDROCORTISONE [Concomitant]
     Dosage: UNK UKN, UNK
  5. PANTOPRAZOLE [Concomitant]
     Dosage: UNK UKN, UNK
  6. PRAVASTATIN SODIUM [Concomitant]
  7. THYROXINE SODIUM [Concomitant]
     Dosage: UNK UKN, UNK
  8. PANADOL OSTEO [Concomitant]
     Dosage: UNK UKN, UNK

REACTIONS (1)
  - Hyponatraemia [Unknown]
